FAERS Safety Report 24042304 (Version 4)
Quarter: 2024Q3

REPORT INFORMATION
  Report Type: Spontaneous
  Country: IN (occurrence: IN)
  Receive Date: 20240702
  Receipt Date: 20240808
  Transmission Date: 20241016
  Serious: Yes (Other)
  Sender: SANDOZ
  Company Number: IN-SANDOZ-SDZ2024IN060624

PATIENT
  Sex: Male

DRUGS (2)
  1. MYFORTIC [Suspect]
     Active Substance: MYCOPHENOLATE SODIUM
     Indication: Renal transplant
     Dosage: 300 MG, BID
     Route: 048
  2. TACROLIMUS [Suspect]
     Active Substance: TACROLIMUS
     Indication: Renal transplant
     Dosage: 2 MG, BID
     Route: 048

REACTIONS (14)
  - Asphyxia [Unknown]
  - Lower respiratory tract infection [Unknown]
  - Cardiac failure acute [Unknown]
  - Renal impairment [Unknown]
  - Electrolyte imbalance [Unknown]
  - Peripheral venous disease [Unknown]
  - Toxicity to various agents [Unknown]
  - Hypoaesthesia [Unknown]
  - Hypoalbuminaemia [Unknown]
  - Generalised oedema [Unknown]
  - Weight increased [Unknown]
  - Dyspnoea [Unknown]
  - Infection [Unknown]
  - Abdominal pain [Unknown]
